FAERS Safety Report 20164938 (Version 1)
Quarter: 2021Q4

REPORT INFORMATION
  Report Type: Spontaneous
  Country: CN (occurrence: CN)
  Receive Date: 20211209
  Receipt Date: 20211209
  Transmission Date: 20220304
  Serious: Yes (Other)
  Sender: FDA-Public Use
  Company Number: CN-Merck Healthcare KGaA-9283696

PATIENT
  Age: 66 Year
  Sex: Male
  Weight: 59 kg

DRUGS (2)
  1. ERBITUX [Suspect]
     Active Substance: CETUXIMAB
     Indication: Colon cancer
     Dosage: 800 MG, ONCE IN 21 DAYS, ALONG WITH 0.9% SODIUM CHLORIDE INJECTION 300ML
     Route: 041
     Dates: start: 20210927, end: 20211019
  2. IRINOTECAN [Concomitant]
     Active Substance: IRINOTECAN
     Indication: Colon cancer
     Dosage: 320 MG, ONCE IN 21 DAYS, ALONG WITH 0.9% SODIUM CHLORIDE INJECTION 250ML
     Route: 041
     Dates: start: 20210927

REACTIONS (1)
  - Palmar-plantar erythrodysaesthesia syndrome [Recovering/Resolving]

NARRATIVE: CASE EVENT DATE: 20211026
